FAERS Safety Report 22827358 (Version 2)
Quarter: 2023Q4

REPORT INFORMATION
  Report Type: Spontaneous
  Country: PL (occurrence: PL)
  Receive Date: 20230816
  Receipt Date: 20231011
  Transmission Date: 20240110
  Serious: Yes (Death, Other)
  Sender: FDA-Public Use
  Company Number: PL-BAXTER-2023BAX028258

PATIENT
  Age: 64 Year
  Sex: Female

DRUGS (7)
  1. ACETAMINOPHEN [Suspect]
     Active Substance: ACETAMINOPHEN
     Indication: Arthralgia
     Dosage: AT A DOSE OF 1,000 MG 2 ?/24 H DURING THE DAY IN COMBINATION WITH DIPHENHYDRAMINE FOR THE NIGHT
     Route: 065
  2. DIPHENHYDRAMINE [Suspect]
     Active Substance: DIPHENHYDRAMINE
     Indication: Arthralgia
     Dosage: PARACETAMOL IN COMBINATION WITH DIPHENHYDRAMINE FOR THE NIGHT
     Route: 065
  3. WARFARIN [Suspect]
     Active Substance: WARFARIN
     Indication: Anticoagulant therapy
     Dosage: VARIABLE DOSE
     Route: 065
  4. OMEPRAZOLE [Suspect]
     Active Substance: OMEPRAZOLE
     Indication: Abdominal pain upper
     Dosage: AT A DOSE OF 40 MG/24 H
     Route: 065
  5. PROPAFENONE [Concomitant]
     Active Substance: PROPAFENONE
     Dosage: AT A DOSE OF 2 ? 150 MG
     Route: 065
  6. METOPROLOL [Concomitant]
     Active Substance: METOPROLOL
     Dosage: 1 X 50 MG
     Route: 065
  7. CHONDROITIN SULFATE (BOVINE) [Concomitant]
     Active Substance: CHONDROITIN SULFATE (BOVINE)
     Indication: Supplementation therapy
     Dosage: UNK
     Route: 065

REACTIONS (4)
  - Subarachnoid haemorrhage [Fatal]
  - Drug interaction [Fatal]
  - Product selection error [Fatal]
  - Abdominal pain upper [Unknown]
